FAERS Safety Report 9129503 (Version 1)
Quarter: 2013Q1

REPORT INFORMATION
  Report Type: Spontaneous
  Country: CA (occurrence: CA)
  Receive Date: 20130228
  Receipt Date: 20130228
  Transmission Date: 20140127
  Serious: Yes (Hospitalization)
  Sender: FDA-Public Use
  Company Number: CA-AMGEN-CANSP2013011783

PATIENT
  Age: 75 Year
  Sex: Male

DRUGS (5)
  1. XGEVA [Suspect]
     Indication: BONE CANCER
     Dosage: 120 MG, UNK
     Dates: start: 20121228
  2. CALCITONIN [Concomitant]
  3. IRON [Concomitant]
  4. METFORMIN [Concomitant]
  5. HYDROMIN [Concomitant]

REACTIONS (2)
  - Back pain [Not Recovered/Not Resolved]
  - Neck pain [Not Recovered/Not Resolved]
